FAERS Safety Report 17306326 (Version 1)
Quarter: 2020Q1

REPORT INFORMATION
  Report Type: Other
  Country: DE (occurrence: DE)
  Receive Date: 20200123
  Receipt Date: 20200123
  Transmission Date: 20200409
  Serious: Yes (Death)
  Sender: FDA-Public Use
  Company Number: DE-DEXPHARM-20190953

PATIENT
  Age: 45 Year
  Sex: Male

DRUGS (6)
  1. DICLOFENAC [Suspect]
     Active Substance: DICLOFENAC
  2. ALPHA-PNP [Suspect]
     Active Substance: .ALPHA.-PYRROLIDINOPENTIOPHENONE
  3. U-47700 [Suspect]
     Active Substance: U-47700
  4. N-ETHYLHEXEDRONE [Suspect]
     Active Substance: N-ETHYLHEXEDRONE
  5. N-ETHYLPENTYLONE [Suspect]
     Active Substance: N-ETHYLPENTYLONE
  6. CITALOPRAM [Suspect]
     Active Substance: CITALOPRAM HYDROBROMIDE

REACTIONS (2)
  - Pneumonia [Fatal]
  - Poisoning [Fatal]
